FAERS Safety Report 7047920-X (Version None)
Quarter: 2010Q4

REPORT INFORMATION
  Report Type: 
  Country: None (occurrence: None)
  Receive Date: 20101015
  Receipt Date: 20101011
  Transmission Date: 20110411
  Serious: Yes (Life-Threatening)
  Sender: FDA-Public Use
  Company Number: IT-WYE-G06436910

PATIENT
  Sex: Female

DRUGS (5)
  1. EFFEXOR [Suspect]
     Indication: DEPRESSION
     Route: 048
     Dates: start: 20070709, end: 20100709
  2. HALCION [Concomitant]
  3. FOLINA [Concomitant]
  4. PERIDON [Suspect]
     Route: 048
     Dates: start: 20100625, end: 20100709
  5. OXYBUTYNIN [Concomitant]
     Route: 048

REACTIONS (3)
  - CARDIAC ARREST [None]
  - ISCHAEMIC HEPATITIS [None]
  - RENAL FAILURE [None]
